FAERS Safety Report 16159296 (Version 2)
Quarter: 2019Q2

REPORT INFORMATION
  Report Type: Report from Study
  Country: US (occurrence: US)
  Receive Date: 20190404
  Receipt Date: 20190515
  Transmission Date: 20190711
  Serious: Yes (Hospitalization)
  Sender: FDA-Public Use
  Company Number: US-TEVA-2019-US-1032437

PATIENT
  Age: 50 Year

DRUGS (5)
  1. SEVELAMER [Concomitant]
     Active Substance: SEVELAMER
     Route: 065
  2. ONDANSETRON [Concomitant]
     Active Substance: ONDANSETRON
     Route: 065
  3. GABAPENTIN. [Suspect]
     Active Substance: GABAPENTIN
     Indication: NEURALGIA
     Dosage: 300 MILLIGRAM DAILY;
     Route: 065
  4. INSULIN-GLARGINE [Concomitant]
     Active Substance: INSULIN NOS
     Route: 065
  5. PANTOPRAZOLE [Concomitant]
     Active Substance: PANTOPRAZOLE
     Route: 065

REACTIONS (1)
  - Myoclonus [Recovered/Resolved]
